FAERS Safety Report 19372519 (Version 1)
Quarter: 2021Q2

REPORT INFORMATION
  Report Type: Spontaneous
  Country: US (occurrence: US)
  Receive Date: 20210604
  Receipt Date: 20210604
  Transmission Date: 20210717
  Serious: Yes (Other)
  Sender: FDA-Public Use
  Company Number: US-ASTRAZENECA-2021A486064

PATIENT
  Age: 41 Year
  Sex: Female

DRUGS (1)
  1. LYNPARZA [Suspect]
     Active Substance: OLAPARIB
     Indication: OVARIAN CANCER
     Dosage: UNKNOWN
     Route: 048
     Dates: start: 202008

REACTIONS (5)
  - Ejection fraction abnormal [Unknown]
  - Tachycardia [Unknown]
  - Fatigue [Unknown]
  - Dyspnoea [Unknown]
  - Cardiac failure [Unknown]
